FAERS Safety Report 22780955 (Version 2)
Quarter: 2024Q1

REPORT INFORMATION
  Report Type: Spontaneous
  Country: US (occurrence: US)
  Receive Date: 20230803
  Receipt Date: 20240329
  Transmission Date: 20240410
  Serious: Yes (Other)
  Sender: FDA-Public Use
  Company Number: US-BRISTOL-MYERS SQUIBB COMPANY-2023-108863

PATIENT
  Age: 87 Year
  Sex: Female

DRUGS (1)
  1. LENALIDOMIDE [Suspect]
     Active Substance: LENALIDOMIDE
     Indication: Breast cancer female
     Dosage: TAKE 1 WHOLE CAPSULE BY MOUTH WITH WATER AT THE SAME TIME DAILY
     Route: 048
     Dates: start: 20221031

REACTIONS (6)
  - Off label use [Unknown]
  - Hip fracture [Unknown]
  - Diarrhoea [Unknown]
  - Therapy interrupted [Unknown]
  - Protein total increased [Unknown]
  - Blood iron decreased [Unknown]
